FAERS Safety Report 4582848-6 (Version None)
Quarter: 2005Q1

REPORT INFORMATION
  Report Type: 
  Country: None (occurrence: None)
  Receive Date: 20050215
  Receipt Date: 20050204
  Transmission Date: 20050727
  Serious: Yes (Hospitalization)
  Sender: FDA-Public Use
  Company Number: JP-ROCHE-395144

PATIENT
  Age: 12 Year
  Sex: Male

DRUGS (1)
  1. TAMIFLU [Suspect]
     Route: 048
     Dates: start: 20050203

REACTIONS (2)
  - ENCEPHALOPATHY [None]
  - LOSS OF CONSCIOUSNESS [None]
